FAERS Safety Report 5954137-6 (Version None)
Quarter: 2008Q4

REPORT INFORMATION
  Report Type: 
  Country: None (occurrence: None)
  Receive Date: 20081117
  Receipt Date: 20081106
  Transmission Date: 20090506
  Serious: Yes (Life-Threatening)
  Sender: FDA-Public Use
  Company Number: IT-JNJFOC-20080205151

PATIENT
  Sex: Male
  Weight: 80 kg

DRUGS (12)
  1. TMC114 [Suspect]
     Route: 048
  2. TMC114 [Suspect]
     Indication: HIV INFECTION
     Dosage: 15-JAN-2008 PATIENT SWITCHED TO PREZISTA
     Route: 048
  3. RITONAVIR [Suspect]
     Indication: HIV INFECTION
     Dosage: SWITCHED TO COMMERCIAL DRUG ON 15-JAN-2008
     Route: 048
  4. TDF [Concomitant]
     Indication: HIV INFECTION
     Route: 048
  5. 3TC [Concomitant]
     Indication: HIV INFECTION
     Route: 048
  6. HALDOL [Concomitant]
     Indication: DEPRESSION
     Route: 048
  7. LARGCTIL [Concomitant]
     Indication: DEPRESSION
     Route: 048
  8. DISIPAL [Concomitant]
     Indication: POLYNEUROPATHY
     Route: 048
  9. FLUVOXAMINE MALEATE [Concomitant]
     Indication: DEPRESSION
     Route: 048
  10. DIAMICRON [Concomitant]
     Indication: DIABETES MELLITUS
     Route: 048
  11. CIPROFLOXACIN [Concomitant]
     Indication: OROPHARYNGEAL PAIN
     Route: 048
  12. MYCOSTATIN [Concomitant]
     Indication: OROPHARYNGEAL PAIN
     Route: 048

REACTIONS (1)
  - B-CELL LYMPHOMA [None]
